FAERS Safety Report 15719389 (Version 1)
Quarter: 2018Q4

REPORT INFORMATION
  Report Type: Spontaneous
  Country: FR (occurrence: FR)
  Receive Date: 20181213
  Receipt Date: 20181213
  Transmission Date: 20190205
  Serious: Yes (Life-Threatening, Other)
  Sender: FDA-Public Use
  Company Number: FR-JNJFOC-20181213877

PATIENT
  Age: 51 Year
  Sex: Female

DRUGS (1)
  1. TRAMADOL HYDROCHLORIDE AND ACETAMINOPHEN [Suspect]
     Active Substance: ACETAMINOPHEN\TRAMADOL HYDROCHLORIDE
     Indication: PRODUCT USED FOR UNKNOWN INDICATION
     Route: 048
     Dates: start: 20180902, end: 20180902

REACTIONS (6)
  - Hepatocellular injury [Recovered/Resolved with Sequelae]
  - Toxicity to various agents [Recovered/Resolved with Sequelae]
  - Analgesic drug level increased [Unknown]
  - Hepatitis fulminant [Unknown]
  - Liver transplant [Recovered/Resolved with Sequelae]
  - Intentional overdose [Unknown]

NARRATIVE: CASE EVENT DATE: 20180902
